FAERS Safety Report 11191105 (Version 2)
Quarter: 2015Q3

REPORT INFORMATION
  Report Type: Spontaneous
  Country: US (occurrence: US)
  Receive Date: 20150615
  Receipt Date: 20150720
  Transmission Date: 20151125
  Serious: No
  Sender: FDA-Public Use
  Company Number: US-GILEAD-2015-0158219

PATIENT
  Sex: Male

DRUGS (3)
  1. OXYCODONE [Concomitant]
     Active Substance: OXYCODONE
  2. XANAX [Concomitant]
     Active Substance: ALPRAZOLAM
  3. HARVONI [Suspect]
     Active Substance: LEDIPASVIR\SOFOSBUVIR
     Indication: PRODUCT USED FOR UNKNOWN INDICATION
     Dosage: UNK
     Route: 065
     Dates: start: 2014, end: 201505

REACTIONS (8)
  - Depression [Unknown]
  - Headache [Unknown]
  - Confusional state [Unknown]
  - Agitation [Unknown]
  - Constipation [Unknown]
  - Energy increased [Unknown]
  - Fatigue [Unknown]
  - Gastrointestinal pain [Unknown]
